FAERS Safety Report 14991910 (Version 1)
Quarter: 2018Q2

REPORT INFORMATION
  Report Type: Spontaneous
  Country: US (occurrence: US)
  Receive Date: 20180517
  Receipt Date: 20180517
  Transmission Date: 20180711
  Serious: Yes (Life-Threatening, Hospitalization, Other)
  Sender: FDA-Public Use
  Company Number: None

PATIENT
  Age: 33 Year
  Sex: Female
  Weight: 65.77 kg

DRUGS (3)
  1. IRON [Concomitant]
     Active Substance: IRON
  2. MULTIVITAMIN [Concomitant]
     Active Substance: VITAMINS
  3. LILETTA [Suspect]
     Active Substance: LEVONORGESTREL

REACTIONS (8)
  - Device related infection [None]
  - Heart rate abnormal [None]
  - Shock [None]
  - Depression [None]
  - Pelvic inflammatory disease [None]
  - Pyrexia [None]
  - Cyst rupture [None]
  - Vaginal haemorrhage [None]

NARRATIVE: CASE EVENT DATE: 20171215
